FAERS Safety Report 23403849 (Version 1)
Quarter: 2024Q1

REPORT INFORMATION
  Report Type: Spontaneous
  Country: PT (occurrence: PT)
  Receive Date: 20240116
  Receipt Date: 20240116
  Transmission Date: 20240410
  Serious: Yes (Other)
  Sender: FDA-Public Use
  Company Number: PT-SANDOZ-SDZ2024PT003489

PATIENT
  Age: 58 Year
  Sex: Female

DRUGS (1)
  1. HYRIMOZ [Suspect]
     Active Substance: ADALIMUMAB-ADAZ
     Indication: Crohn^s disease
     Dosage: 1 CANETA 14/14 DIAS
     Route: 058
     Dates: start: 20230125, end: 20230703

REACTIONS (5)
  - Loss of therapeutic response [Recovered/Resolved]
  - Product substitution issue [Recovered/Resolved]
  - Injection site haematoma [Recovered/Resolved]
  - Diarrhoea [Recovered/Resolved]
  - Injection site pain [Recovered/Resolved]

NARRATIVE: CASE EVENT DATE: 20230125
